FAERS Safety Report 23740586 (Version 1)
Quarter: 2024Q2

REPORT INFORMATION
  Report Type: Spontaneous
  Country: US (occurrence: US)
  Receive Date: 20240415
  Receipt Date: 20240415
  Transmission Date: 20240716
  Serious: Yes (Hospitalization, Other)
  Sender: FDA-Public Use
  Company Number: US-HALEON-2166532

PATIENT
  Age: 41 Year
  Sex: Male

DRUGS (1)
  1. TERBINAFINE HYDROCHLORIDE [Suspect]
     Active Substance: TERBINAFINE HYDROCHLORIDE
     Indication: Onychomycosis

REACTIONS (6)
  - Drug-induced liver injury [Recovering/Resolving]
  - Toxicity to various agents [Recovering/Resolving]
  - Jaundice [Recovering/Resolving]
  - Abdominal pain upper [Recovering/Resolving]
  - Pruritus [Recovering/Resolving]
  - Faeces pale [Recovering/Resolving]
